FAERS Safety Report 10140355 (Version 3)
Quarter: 2014Q2

REPORT INFORMATION
  Report Type: Spontaneous
  Country: US (occurrence: US)
  Receive Date: 20140429
  Receipt Date: 20140625
  Transmission Date: 20141212
  Serious: Yes (Other)
  Sender: FDA-Public Use
  Company Number: US-009507513-1404USA013855

PATIENT
  Sex: Female
  Weight: 49.43 kg

DRUGS (7)
  1. INTRONA [Suspect]
     Indication: MALIGNANT MELANOMA
     Dosage: TOTAL DAILY DOSE: 20 MILLION UNITS
     Route: 042
     Dates: start: 20131118, end: 201312
  2. ONDANSETRON [Concomitant]
     Dosage: 8 MG, BID, PRN
     Route: 048
     Dates: start: 20131203
  3. ONDANSETRON [Concomitant]
     Dosage: 8 MG, TID, PRN
     Route: 048
     Dates: start: 20131203
  4. ANTACID (CALCIUM CARBONATE) [Concomitant]
     Dosage: 500 MG, QID, PRN
     Route: 048
  5. TYLENOL EXTRA STRENGTH [Concomitant]
     Dosage: 500 MG, PRN
     Route: 048
  6. ASCORBIC ACID [Concomitant]
     Dosage: 500 MG, QD
     Route: 048
  7. CHOLECALCIFEROL [Concomitant]
     Dosage: 400 IU, QD
     Route: 048

REACTIONS (3)
  - Restlessness [Recovering/Resolving]
  - Hyperthyroidism [Recovering/Resolving]
  - Alopecia [Recovering/Resolving]
